FAERS Safety Report 5995119-8 (Version None)
Quarter: 2008Q4

REPORT INFORMATION
  Report Type: 
  Country: None (occurrence: None)
  Receive Date: 20081212
  Receipt Date: 20081205
  Transmission Date: 20090506
  Serious: Yes (Other)
  Sender: FDA-Public Use
  Company Number: PHBS2008NL06654

PATIENT
  Age: 60 Year
  Sex: Female

DRUGS (2)
  1. OCTREOTIDE ACETATE [Suspect]
     Indication: PITUITARY TUMOUR BENIGN
     Dosage: 20 MG, UNK
  2. OCTREOTIDE ACETATE [Suspect]
     Dosage: 30 MG, QW4

REACTIONS (3)
  - ATRIAL FIBRILLATION [None]
  - DRUG INEFFECTIVE [None]
  - TOXIC NODULAR GOITRE [None]
